FAERS Safety Report 9709420 (Version 1)
Quarter: 2013Q4

REPORT INFORMATION
  Report Type: Spontaneous
  Country: US (occurrence: US)
  Receive Date: 20131126
  Receipt Date: 20131126
  Transmission Date: 20140711
  Serious: Yes (Hospitalization)
  Sender: FDA-Public Use
  Company Number: US-MERCK-1311USA010148

PATIENT
  Sex: 0

DRUGS (1)
  1. SAPHRIS [Suspect]
     Dosage: RAPID DISSOLVE 10
     Route: 048

REACTIONS (3)
  - Adverse event [Unknown]
  - Abdominal discomfort [Unknown]
  - Vomiting [Unknown]
